FAERS Safety Report 25001939 (Version 1)
Quarter: 2025Q1

REPORT INFORMATION
  Report Type: Spontaneous
  Country: FR (occurrence: FR)
  Receive Date: 20250224
  Receipt Date: 20250224
  Transmission Date: 20250408
  Serious: Yes (Hospitalization)
  Sender: JOHNSON AND JOHNSON
  Company Number: None

PATIENT
  Age: 70 Year
  Sex: Female

DRUGS (1)
  1. DARZALEX [Suspect]
     Active Substance: DARATUMUMAB
     Indication: Plasma cell myeloma
     Route: 042
     Dates: start: 202312, end: 202412

REACTIONS (3)
  - Encephalopathy [Recovering/Resolving]
  - Confusional state [Recovering/Resolving]
  - Epilepsy [Recovering/Resolving]

NARRATIVE: CASE EVENT DATE: 20241229
